FAERS Safety Report 11419035 (Version 2)
Quarter: 2015Q3

REPORT INFORMATION
  Report Type: Spontaneous
  Country: JP (occurrence: JP)
  Receive Date: 20150826
  Receipt Date: 20150908
  Transmission Date: 20151125
  Serious: Yes (Hospitalization, Disabling)
  Sender: FDA-Public Use
  Company Number: JP-ELI_LILLY_AND_COMPANY-JP201507009569

PATIENT
  Age: 51 Year
  Sex: Male
  Weight: 75 kg

DRUGS (5)
  1. CYMBALTA [Suspect]
     Active Substance: DULOXETINE HYDROCHLORIDE
     Indication: DEPRESSION
     Dosage: 30 MG, BID
     Route: 048
     Dates: end: 20150723
  2. MECOBALAMIN [Concomitant]
     Active Substance: METHYLCOBALAMIN
     Indication: SPINAL OSTEOARTHRITIS
     Dosage: 500 UG, TID
     Route: 048
  3. AIROMATE [Concomitant]
     Indication: SPINAL OSTEOARTHRITIS
     Dosage: 20 MG, TID
     Route: 048
  4. FAMOTIDINE. [Concomitant]
     Active Substance: FAMOTIDINE
     Indication: SPINAL OSTEOARTHRITIS
     Dosage: 10 MG, QD
     Route: 048
  5. ROSEOL [Concomitant]
     Active Substance: LOXOPROFEN SODIUM
     Indication: SPINAL OSTEOARTHRITIS
     Dosage: 60 MG, TID
     Route: 048

REACTIONS (3)
  - Retinopathy hypertensive [Unknown]
  - Hypertensive emergency [Recovered/Resolved with Sequelae]
  - Blood catecholamines increased [Recovered/Resolved]

NARRATIVE: CASE EVENT DATE: 20150705
